FAERS Safety Report 20640113 (Version 2)
Quarter: 2022Q2

REPORT INFORMATION
  Report Type: Spontaneous
  Country: SE (occurrence: SE)
  Receive Date: 20220326
  Receipt Date: 20220520
  Transmission Date: 20220721
  Serious: Yes (Disabling)
  Sender: FDA-Public Use
  Company Number: None

PATIENT
  Age: 43 Year
  Sex: Male

DRUGS (4)
  1. AVASTIN [Suspect]
     Active Substance: BEVACIZUMAB
     Indication: Von Hippel-Lindau disease
     Route: 042
     Dates: start: 20100504
  2. AVASTIN [Suspect]
     Active Substance: BEVACIZUMAB
     Indication: Brain neoplasm
  3. TEMOZOLOMIDE [Concomitant]
     Active Substance: TEMOZOLOMIDE
     Dates: start: 20211014
  4. ONDANSETRON [Concomitant]
     Active Substance: ONDANSETRON
     Dates: start: 20210630

REACTIONS (2)
  - Osteoarthritis [Not Recovered/Not Resolved]
  - Joint destruction [Not Recovered/Not Resolved]

NARRATIVE: CASE EVENT DATE: 20211220
